FAERS Safety Report 5839875-8 (Version None)
Quarter: 2008Q3

REPORT INFORMATION
  Report Type: 
  Country: None (occurrence: None)
  Receive Date: 20080811
  Receipt Date: 20080806
  Transmission Date: 20090109
  Serious: Yes (Hospitalization)
  Sender: FDA-Public Use
  Company Number: JP-BAYER-200811790BYL

PATIENT
  Age: 81 Year
  Sex: Female

DRUGS (1)
  1. ASPIRIN [Suspect]
     Indication: ANGINA PECTORIS
     Route: 048

REACTIONS (3)
  - SYSTEMIC LUPUS ERYTHEMATOSUS [None]
  - THROMBOCYTOPENIA [None]
  - UPPER GASTROINTESTINAL HAEMORRHAGE [None]
